FAERS Safety Report 17676554 (Version 1)
Quarter: 2020Q2

REPORT INFORMATION
  Report Type: Spontaneous
  Country: US (occurrence: US)
  Receive Date: 20200416
  Receipt Date: 20200416
  Transmission Date: 20200714
  Serious: Yes (Hospitalization)
  Sender: FDA-Public Use
  Company Number: None

PATIENT
  Age: 70 Year
  Sex: Female
  Weight: 52.65 kg

DRUGS (15)
  1. COMBIVENT RESPIMAT 20-100MCG [Concomitant]
  2. THEO-24 300MG [Concomitant]
  3. CEPHALEXIN 500MG [Concomitant]
     Active Substance: CEPHALEXIN
  4. PREDNISONE 20MG [Concomitant]
     Active Substance: PREDNISONE
  5. ADVAIR DISKUS 250-50 [Concomitant]
  6. CEFDINIR 300MG [Concomitant]
     Active Substance: CEFDINIR
  7. DOXYCYCLINE HYCLATE 100MG [Concomitant]
     Active Substance: DOXYCYCLINE HYCLATE
  8. HIZENTRA [Suspect]
     Active Substance: HUMAN IMMUNOGLOBULIN G
     Indication: IMMUNOGLOBULINS DECREASED
     Dosage: ?          OTHER FREQUENCY:ONCE WEEKLY;?
     Route: 058
     Dates: start: 20191115, end: 20191227
  9. MEDROL [Concomitant]
     Active Substance: METHYLPREDNISOLONE
  10. BUDESONIDE 0,5MG/2ML [Concomitant]
  11. LEVOFLOXACIN 500MG [Concomitant]
     Active Substance: LEVOFLOXACIN
  12. PROAIR HFA [Concomitant]
     Active Substance: ALBUTEROL SULFATE
  13. PERFOROMIST20MCG/2ML [Concomitant]
  14. YUPELRI 175MCG/3ML [Concomitant]
  15. QVAR REDIHALER 80MCG/ACT [Concomitant]

REACTIONS (4)
  - Dyspnoea [None]
  - Headache [None]
  - Malaise [None]
  - Dizziness [None]

NARRATIVE: CASE EVENT DATE: 20191228
